FAERS Safety Report 25606301 (Version 1)
Quarter: 2025Q3

REPORT INFORMATION
  Report Type: Spontaneous
  Country: US (occurrence: None)
  Receive Date: 20250724
  Receipt Date: 20250724
  Transmission Date: 20251021
  Serious: Yes (Hospitalization, Disabling)
  Sender: FDA-CTU
  Company Number: None

PATIENT
  Age: 44 Year
  Sex: Female

DRUGS (1)
  1. XCOPRI [Suspect]
     Active Substance: CENOBAMATE
     Dosage: 100 MG DAILY ORAL
     Route: 048

REACTIONS (6)
  - Fall [None]
  - Skull fracture [None]
  - Gait disturbance [None]
  - Cerebrovascular accident [None]
  - Atrial fibrillation [None]
  - Dysphagia [None]

NARRATIVE: CASE EVENT DATE: 20250528
